FAERS Safety Report 18832957 (Version 2)
Quarter: 2021Q1

REPORT INFORMATION
  Report Type: Spontaneous
  Country: US (occurrence: US)
  Receive Date: 20210201
  Receipt Date: 20210225
  Transmission Date: 20210419
  Serious: No
  Sender: FDA-Public Use
  Company Number: US-INSUD PHARMA-2101US00041

PATIENT

DRUGS (1)
  1. VIENVA TM [Suspect]
     Active Substance: ETHINYL ESTRADIOL\LEVONORGESTREL
     Indication: CONTRACEPTION
     Dosage: 1 DOSAGE FORM, DAILY
     Route: 048
     Dates: start: 202011

REACTIONS (2)
  - Metrorrhagia [Recovered/Resolved]
  - Menstruation delayed [Recovered/Resolved]

NARRATIVE: CASE EVENT DATE: 202012
